FAERS Safety Report 7046964-1 (Version None)
Quarter: 2010Q4

REPORT INFORMATION
  Report Type: 
  Country: None (occurrence: None)
  Receive Date: 20101015
  Receipt Date: 20101014
  Transmission Date: 20110411
  Serious: Yes (Other)
  Sender: FDA-Public Use
  Company Number: US-BRISTOL-MYERS SQUIBB COMPANY-15330152

PATIENT
  Age: 31 Year
  Sex: Female

DRUGS (5)
  1. CARMUSTINE [Suspect]
     Indication: NON-HODGKIN'S LYMPHOMA
  2. CYCLOPHOSPHAMIDE [Suspect]
     Indication: NON-HODGKIN'S LYMPHOMA
  3. ETOPOSIDE [Suspect]
     Indication: NON-HODGKIN'S LYMPHOMA
  4. MELPHALAN HYDROCHLORIDE [Suspect]
     Indication: NON-HODGKIN'S LYMPHOMA
  5. ARA-C [Suspect]
     Indication: NON-HODGKIN'S LYMPHOMA

REACTIONS (3)
  - CARDIAC TAMPONADE [None]
  - LUNG INFILTRATION [None]
  - PLEURAL EFFUSION [None]
